FAERS Safety Report 25587561 (Version 1)
Quarter: 2025Q3

REPORT INFORMATION
  Report Type: Spontaneous
  Country: JP (occurrence: JP)
  Receive Date: 20250721
  Receipt Date: 20250721
  Transmission Date: 20251021
  Serious: Yes (Other)
  Sender: BAUSCH AND LOMB
  Company Number: JP-BAUSCH-BH-2025-015007

PATIENT
  Age: 15 Year
  Sex: Male

DRUGS (5)
  1. BUDESONIDE [Suspect]
     Active Substance: BUDESONIDE
     Indication: Colitis ulcerative
     Dates: start: 20241107
  2. BUDESONIDE [Suspect]
     Active Substance: BUDESONIDE
     Dates: start: 202411
  3. AZATHIOPRINE [Suspect]
     Active Substance: AZATHIOPRINE
     Indication: Product used for unknown indication
     Route: 065
     Dates: start: 20241121, end: 2024
  4. LIALDA [Suspect]
     Active Substance: MESALAMINE
     Indication: Colitis ulcerative
     Route: 065
     Dates: start: 20241107, end: 20241111
  5. LIALDA [Suspect]
     Active Substance: MESALAMINE
     Route: 065
     Dates: start: 20241024, end: 20241107

REACTIONS (3)
  - Pancreatitis [Unknown]
  - Arthralgia [Recovering/Resolving]
  - Product use issue [Unknown]

NARRATIVE: CASE EVENT DATE: 20241101
